FAERS Safety Report 21226985 (Version 1)
Quarter: 2022Q3

REPORT INFORMATION
  Report Type: Spontaneous
  Country: CA (occurrence: CA)
  Receive Date: 20220818
  Receipt Date: 20220818
  Transmission Date: 20221027
  Serious: Yes (Other)
  Sender: FDA-Public Use
  Company Number: CA-ROCHE-3156499

PATIENT
  Age: 37 Year
  Sex: Female

DRUGS (3)
  1. CLONAZEPAM [Suspect]
     Active Substance: CLONAZEPAM
     Indication: Anxiety
     Dosage: 5MG AS REQUIRED
  2. CLONAZEPAM [Suspect]
     Active Substance: CLONAZEPAM
     Indication: Panic attack
     Dosage: 5MG AS REQUIRED
  3. VENLAFAXINE [Concomitant]
     Active Substance: VENLAFAXINE HYDROCHLORIDE

REACTIONS (1)
  - Coeliac disease [Not Recovered/Not Resolved]
